FAERS Safety Report 23465688 (Version 2)
Quarter: 2024Q1

REPORT INFORMATION
  Report Type: Spontaneous
  Country: TW (occurrence: TW)
  Receive Date: 20240201
  Receipt Date: 20240205
  Transmission Date: 20240409
  Serious: Yes (Other)
  Sender: FDA-Public Use
  Company Number: TW-ASTELLAS-2024US003095

PATIENT
  Age: 61 Year
  Sex: Male

DRUGS (2)
  1. PADCEV [Suspect]
     Active Substance: ENFORTUMAB VEDOTIN-EJFV
     Indication: Transitional cell carcinoma
     Dosage: 1.1 MG/KG, UNKNOWN FREQ. (D1, D8, D15, Q4W)
     Route: 065
     Dates: start: 202309, end: 202310
  2. PADCEV [Suspect]
     Active Substance: ENFORTUMAB VEDOTIN-EJFV
     Dosage: 0.75 MG/KG, UNKNOWN FREQ. (D1, D8, D15, Q4W)
     Route: 065
     Dates: start: 202312

REACTIONS (4)
  - Acute kidney injury [Unknown]
  - Bladder cancer recurrent [Unknown]
  - Skin reaction [Recovered/Resolved]
  - Dysgeusia [Recovered/Resolved]

NARRATIVE: CASE EVENT DATE: 20230101
